FAERS Safety Report 19963394 (Version 1)
Quarter: 2021Q4

REPORT INFORMATION
  Report Type: Spontaneous
  Country: US (occurrence: US)
  Receive Date: 20211017
  Receipt Date: 20211017
  Transmission Date: 20220303
  Serious: Yes (Hospitalization)
  Sender: FDA-Public Use
  Company Number: None

PATIENT
  Age: 85 Year
  Sex: Male
  Weight: 77.85 kg

DRUGS (1)
  1. TAMSULOSIN [Suspect]
     Active Substance: TAMSULOSIN
     Indication: Benign prostatic hyperplasia
     Route: 048
     Dates: start: 20211010, end: 20211012

REACTIONS (4)
  - Hypotension [None]
  - Atrial flutter [None]
  - Orthostatic hypotension [None]
  - Primary cardiac lymphoma [None]

NARRATIVE: CASE EVENT DATE: 20211012
